FAERS Safety Report 23381764 (Version 1)
Quarter: 2024Q1

REPORT INFORMATION
  Report Type: Spontaneous
  Country: DE (occurrence: DE)
  Receive Date: 20240109
  Receipt Date: 20240109
  Transmission Date: 20240409
  Serious: Yes (Death)
  Sender: FDA-Public Use
  Company Number: None

PATIENT
  Age: 79 Year
  Sex: Male
  Weight: 68 kg

DRUGS (3)
  1. CAPECITABINE [Suspect]
     Active Substance: CAPECITABINE
     Indication: Colorectal adenocarcinoma
     Route: 048
     Dates: start: 20231120
  2. TESTOSTERONE [Concomitant]
     Active Substance: TESTOSTERONE
  3. LATANOPROST [Concomitant]
     Active Substance: LATANOPROST
     Dosage: DAILY DOSE: 50 MICROGRAM PER MILLIGRAM
     Route: 047

REACTIONS (5)
  - Arrhythmia [Fatal]
  - Multiple organ dysfunction syndrome [Fatal]
  - Hepatic failure [Fatal]
  - Renal failure [Fatal]
  - Cardiogenic shock [Fatal]

NARRATIVE: CASE EVENT DATE: 20231128
